FAERS Safety Report 9054179 (Version 1)
Quarter: 2013Q1

REPORT INFORMATION
  Report Type: Spontaneous
  Country: US (occurrence: US)
  Receive Date: 20130208
  Receipt Date: 20130208
  Transmission Date: 20140127
  Serious: No
  Sender: FDA-Public Use
  Company Number: US-ROCHE-1187617

PATIENT
  Sex: Male
  Weight: 19.07 kg

DRUGS (3)
  1. TAMIFLU [Suspect]
     Indication: INFLUENZA
     Route: 065
  2. TAMIFLU [Suspect]
     Route: 065
     Dates: start: 20130120
  3. TAMIFLU [Suspect]
     Route: 065
     Dates: start: 20130121, end: 20130121

REACTIONS (2)
  - Overdose [Unknown]
  - No adverse event [Unknown]
